FAERS Safety Report 20466687 (Version 3)
Quarter: 2022Q2

REPORT INFORMATION
  Report Type: Report from Study
  Country: CO (occurrence: CO)
  Receive Date: 20220213
  Receipt Date: 20220518
  Transmission Date: 20220721
  Serious: Yes (Hospitalization, Other)
  Sender: FDA-Public Use
  Company Number: CO-JNJFOC-20220216843

PATIENT
  Age: 39 Year
  Sex: Male
  Weight: 80 kg

DRUGS (8)
  1. INVEGA SUSTENNA [Suspect]
     Active Substance: PALIPERIDONE PALMITATE
     Indication: Schizophrenia
     Route: 030
     Dates: start: 20210708
  2. INVEGA SUSTENNA [Suspect]
     Active Substance: PALIPERIDONE PALMITATE
  3. INVEGA SUSTENNA [Suspect]
     Active Substance: PALIPERIDONE PALMITATE
  4. SINOGAL [Concomitant]
  5. BIPERIDEN [Concomitant]
     Active Substance: BIPERIDEN
  6. RISPERIDONE [Concomitant]
     Active Substance: RISPERIDONE
  7. VALPROIC ACID [Concomitant]
     Active Substance: VALPROIC ACID
  8. FLUOXETINE [Concomitant]
     Active Substance: FLUOXETINE HYDROCHLORIDE

REACTIONS (3)
  - Fall [Not Recovered/Not Resolved]
  - Schizophrenia [Not Recovered/Not Resolved]
  - Treatment noncompliance [Not Recovered/Not Resolved]

NARRATIVE: CASE EVENT DATE: 20211201
